FAERS Safety Report 16697495 (Version 4)
Quarter: 2020Q2

REPORT INFORMATION
  Report Type: Report from Study
  Country: IT (occurrence: IT)
  Receive Date: 20190813
  Receipt Date: 20200526
  Transmission Date: 20200713
  Serious: Yes (Life-Threatening, Hospitalization)
  Sender: FDA-Public Use
  Company Number: IT-PFIZER INC-2019346689

PATIENT
  Age: 73 Year
  Sex: Male

DRUGS (2)
  1. METHOTREXATE SODIUM. [Suspect]
     Active Substance: METHOTREXATE SODIUM
     Indication: ARTHRITIS
     Dosage: 15 MG, 1X/DAY
     Route: 048
     Dates: start: 20190709, end: 20190711
  2. FOLIC ACID. [Concomitant]
     Active Substance: FOLIC ACID
     Dosage: 350 MG, UNK
     Route: 048

REACTIONS (6)
  - Diarrhoea [Recovered/Resolved]
  - Oedema mouth [Recovered/Resolved]
  - Leukopenia [Recovered/Resolved]
  - Thrombocytopenia [Recovered/Resolved]
  - Overdose [Recovered/Resolved]
  - Stomatitis [Recovered/Resolved]

NARRATIVE: CASE EVENT DATE: 20190716
